FAERS Safety Report 21956084 (Version 3)
Quarter: 2023Q4

REPORT INFORMATION
  Report Type: Spontaneous
  Country: FR (occurrence: FR)
  Receive Date: 20230206
  Receipt Date: 20231027
  Transmission Date: 20240110
  Serious: Yes (Hospitalization)
  Sender: FDA-Public Use
  Company Number: FR-JNJFOC-20230155561

PATIENT
  Age: 9 Decade
  Sex: Female

DRUGS (1)
  1. STELARA [Suspect]
     Active Substance: USTEKINUMAB
     Indication: Colitis ulcerative
     Route: 040
     Dates: start: 20221205

REACTIONS (1)
  - Pancreatitis acute [Not Recovered/Not Resolved]

NARRATIVE: CASE EVENT DATE: 20230109
